FAERS Safety Report 5893666-0 (Version None)
Quarter: 2008Q3

REPORT INFORMATION
  Report Type: 
  Country: None (occurrence: None)
  Receive Date: 20080923
  Receipt Date: 20071005
  Transmission Date: 20090109
  Serious: No
  Sender: FDA-Public Use
  Company Number: US-ASTRAZENECA-2007UW23312

PATIENT
  Sex: Male

DRUGS (2)
  1. SEROQUEL [Suspect]
     Indication: BIPOLAR I DISORDER
     Dosage: 300 MG (1-2 TABLETS) AT NIGHT
     Route: 048
  2. SEROQUEL [Suspect]
     Indication: BIPOLAR DISORDER
     Dosage: 300 MG (1-2 TABLETS) AT NIGHT
     Route: 048

REACTIONS (6)
  - AGGRESSION [None]
  - FEELING ABNORMAL [None]
  - HEADACHE [None]
  - HYPERGLYCAEMIA [None]
  - HYPERSOMNIA [None]
  - MENTAL DISORDER [None]
